FAERS Safety Report 17356675 (Version 1)
Quarter: 2020Q1

REPORT INFORMATION
  Report Type: Spontaneous
  Country: US (occurrence: US)
  Receive Date: 20200131
  Receipt Date: 20200131
  Transmission Date: 20200409
  Serious: No
  Sender: FDA-Public Use
  Company Number: US-009507513-2001USA011495

PATIENT
  Sex: Female

DRUGS (3)
  1. ISENTRESS [Suspect]
     Active Substance: RALTEGRAVIR POTASSIUM
     Indication: HIV INFECTION
     Dosage: ROUTE OF ADMINISTRATION: PERCUTANEOUS ENDOSCOPIC GASTROSTOMY (PEG) TUBE
  2. LAMIVUDINE. [Concomitant]
     Active Substance: LAMIVUDINE
  3. TENOFOVIR [Concomitant]
     Active Substance: TENOFOVIR

REACTIONS (2)
  - Incorrect route of product administration [Unknown]
  - No adverse event [Unknown]
